FAERS Safety Report 5022908-9 (Version None)
Quarter: 2006Q2

REPORT INFORMATION
  Report Type: 
  Country: None (occurrence: None)
  Receive Date: 20060426
  Receipt Date: 20060309
  Transmission Date: 20061013
  Serious: Yes (Other)
  Sender: FDA-Public Use
  Company Number: 2006035134

PATIENT
  Sex: Female

DRUGS (5)
  1. LYRICA [Suspect]
     Indication: NEUROPATHY
     Dosage: 300 MG (75 MG,2 IN 1 D)
     Dates: start: 20051201
  2. NEURONTIN [Suspect]
     Indication: NEUROPATHY
     Dosage: 1800 MG
     Dates: end: 20051201
  3. NEXIUM [Concomitant]
  4. ZETIA [Concomitant]
  5. TOPROL-XL [Concomitant]

REACTIONS (6)
  - ALOPECIA [None]
  - DRY MOUTH [None]
  - NEUROPATHY [None]
  - SENSITIVITY OF TEETH [None]
  - TOOTH INJURY [None]
  - WEIGHT INCREASED [None]
